FAERS Safety Report 14233376 (Version 1)
Quarter: 2017Q4

REPORT INFORMATION
  Report Type: Spontaneous
  Country: MY (occurrence: MY)
  Receive Date: 20171128
  Receipt Date: 20171128
  Transmission Date: 20180321
  Serious: Yes (Other)
  Sender: FDA-Public Use
  Company Number: MY-BAUSCH-BL-2017-032478

PATIENT
  Age: 18 Year
  Sex: Male

DRUGS (2)
  1. PREDNISOLONE. [Suspect]
     Active Substance: PREDNISOLONE
     Dosage: TAPERED DOSE
     Route: 048
  2. PREDNISOLONE. [Suspect]
     Active Substance: PREDNISOLONE
     Indication: IDIOPATHIC ORBITAL INFLAMMATION
     Dosage: 12 HOURS (BD)
     Route: 048

REACTIONS (3)
  - Condition aggravated [Unknown]
  - Exophthalmos [Unknown]
  - Visual impairment [Unknown]
